FAERS Safety Report 6419518-5 (Version None)
Quarter: 2009Q4

REPORT INFORMATION
  Report Type: 
  Country: None (occurrence: None)
  Receive Date: 20091029
  Receipt Date: 20091019
  Transmission Date: 20100525
  Serious: Yes (Other)
  Sender: FDA-Public Use
  Company Number: DK-PFIZER INC-2009244476

PATIENT
  Age: 48 Year

DRUGS (6)
  1. EPIRUBICIN HCL [Suspect]
     Indication: CHEMOTHERAPY
     Dosage: UNK
     Dates: start: 20071026, end: 20080220
  2. TAXOTERE [Suspect]
     Indication: CHEMOTHERAPY
     Dosage: UNK
     Dates: start: 20071026
  3. TAXOTERE [Suspect]
     Dosage: 180 MG, UNK
     Dates: start: 20080109, end: 20080109
  4. TAXOTERE [Suspect]
     Dosage: 180 MG, UNK
     Dates: start: 20080131, end: 20080131
  5. TAXOTERE [Suspect]
     Dosage: 180 MG, UNK
     Dates: start: 20080220, end: 20080220
  6. CYCLOPHOSPHAMIDE [Suspect]
     Indication: CHEMOTHERAPY
     Dosage: UNK
     Route: 042
     Dates: start: 20071026, end: 20080120

REACTIONS (2)
  - ALOPECIA TOTALIS [None]
  - OEDEMA [None]
